FAERS Safety Report 13123660 (Version 1)
Quarter: 2017Q1

REPORT INFORMATION
  Report Type: Spontaneous
  Country: FR (occurrence: FR)
  Receive Date: 20170117
  Receipt Date: 20170117
  Transmission Date: 20170428
  Serious: Yes (Other)
  Sender: FDA-Public Use
  Company Number: PHHY2017FR004521

PATIENT
  Age: 88 Year
  Sex: Female

DRUGS (5)
  1. FLUINDIONE [Concomitant]
     Active Substance: FLUINDIONE
     Route: 065
  2. PREDNISOLON [Concomitant]
     Active Substance: PREDNISOLONE
     Indication: TEMPORAL ARTERITIS
     Dosage: 10 MG, QD
     Route: 065
  3. CLARITHROMYCIN. [Suspect]
     Active Substance: CLARITHROMYCIN
     Indication: MYCOBACTERIUM CHELONAE INFECTION
     Dosage: 500 MG, TID
     Route: 065
  4. PRISTINAMYCINE [Concomitant]
     Active Substance: PRISTINAMYCIN
     Indication: MYCOBACTERIUM CHELONAE INFECTION
     Dosage: 50 MG, TID
     Route: 065
  5. MINOCYCLINE [Suspect]
     Active Substance: MINOCYCLINE\MINOCYCLINE HYDROCHLORIDE
     Indication: MYCOBACTERIUM CHELONAE INFECTION
     Dosage: 200 MG, QD
     Route: 065

REACTIONS (2)
  - Skin lesion [Unknown]
  - Disease progression [Unknown]
